FAERS Safety Report 5372862-5 (Version None)
Quarter: 2007Q2

REPORT INFORMATION
  Report Type: 
  Country: None (occurrence: None)
  Receive Date: 20070621
  Receipt Date: 20070424
  Transmission Date: 20071010
  Serious: No
  Sender: FDA-Public Use
  Company Number: US-CVT-070099

PATIENT
  Age: 72 Year
  Sex: Male

DRUGS (9)
  1. RANEXA [Suspect]
     Indication: ANGINA PECTORIS
     Dosage: 500 MG, BID, ORAL
     Route: 048
     Dates: start: 20070420, end: 20070421
  2. ATENOLOL [Concomitant]
  3. GLUCOPHAGE/00082701/ (METFORMIN) [Concomitant]
  4. ACTOS/01460201/(PIOGLITAZONE) [Concomitant]
  5. LISINOPRIL/00894001/ (LISINOPRIL) [Concomitant]
  6. ALTACE [Concomitant]
  7. NITROGLYCERIN [Concomitant]
  8. LIPITOR/01326101/(ATORVASTIN) [Concomitant]
  9. AMARYL [Concomitant]

REACTIONS (2)
  - DIPLOPIA [None]
  - EYE PAIN [None]
